FAERS Safety Report 5075703-9 (Version None)
Quarter: 2006Q3

REPORT INFORMATION
  Report Type: 
  Country: None (occurrence: None)
  Receive Date: 20060809
  Receipt Date: 20040618
  Transmission Date: 20061208
  Serious: Yes (Hospitalization)
  Sender: FDA-Public Use
  Company Number: PHBS2004VE08254

PATIENT
  Age: 26 Year
  Sex: Female
  Weight: 52 kg

DRUGS (2)
  1. GLEEVEC [Suspect]
     Indication: CHRONIC MYELOID LEUKAEMIA
     Dosage: 400 MG/D
     Route: 048
     Dates: start: 20040301
  2. GLEEVEC [Suspect]
     Dosage: 400 MG/D
     Route: 048
     Dates: start: 20040713

REACTIONS (8)
  - DRUG EXPOSURE DURING PREGNANCY [None]
  - DRUG INTOLERANCE [None]
  - HEADACHE [None]
  - IRON DEFICIENCY ANAEMIA [None]
  - LEUKOCYTOSIS [None]
  - NORMAL NEWBORN [None]
  - THROMBOCYTHAEMIA [None]
  - VOMITING [None]
